FAERS Safety Report 24656330 (Version 1)
Quarter: 2024Q4

REPORT INFORMATION
  Report Type: Report from Study
  Country: US (occurrence: US)
  Receive Date: 20241124
  Receipt Date: 20241124
  Transmission Date: 20250115
  Serious: Yes (Other)
  Sender: CSL BEHRING
  Company Number: US-BEH-2024183551

PATIENT
  Age: 17 Year
  Sex: Male
  Weight: 72 kg

DRUGS (13)
  1. HIZENTRA [Suspect]
     Active Substance: HUMAN IMMUNOGLOBULIN G
     Indication: Product used for unknown indication
     Dosage: UNK
     Route: 065
  2. ALBUTEROL [Concomitant]
     Active Substance: ALBUTEROL
     Dosage: 90 ?G, RESUE INHALTION AS NEEDED AND BEFORE EXERCISE
     Route: 055
  3. OLOPATADINE [Concomitant]
     Active Substance: OLOPATADINE
     Dosage: 665 ?G, 2 SPRAY IN MORNING
  4. FAMOTIDINE [Concomitant]
     Active Substance: FAMOTIDINE
     Dosage: 20 MG, 1-2 TABLETS BEFORE BED
     Route: 048
  5. FEXOFENADINE [Concomitant]
     Active Substance: FEXOFENADINE HYDROCHLORIDE
     Dosage: 180 MG, QD
     Route: 048
  6. SPIRIVA [Concomitant]
     Active Substance: TIOTROPIUM BROMIDE MONOHYDRATE
     Dosage: 1.25 ?G, 2 PUFFS AM DAILY
     Route: 055
  7. SYMBICORT [Concomitant]
     Active Substance: BUDESONIDE\FORMOTEROL FUMARATE DIHYDRATE
     Dosage: 2 PUFFS DAILY MORNING
     Route: 055
  8. LACTASE [Concomitant]
     Active Substance: LACTASE
     Indication: Supplementation therapy
     Dosage: UNK, PRN FOR DAIRY
  9. PROBIOTICS NOS [Concomitant]
     Active Substance: PROBIOTICS NOS
     Indication: Supplementation therapy
     Dosage: UNK, PRN
  10. VITAMINS [Concomitant]
     Active Substance: VITAMINS
     Indication: Supplementation therapy
     Dosage: MUSCLE TECH PLATINUM 1 PILL DAILY
  11. Beet root [Concomitant]
     Indication: Supplementation therapy
     Dosage: 2000 MG, QD
  12. BETA ALANINE [Concomitant]
     Indication: Supplementation therapy
     Dosage: 3 G, QD, 1 SCOOP
  13. EPINEPHRINE [Concomitant]
     Active Substance: EPINEPHRINE
     Indication: Anaphylactic reaction
     Dosage: 0.3 MG, QD
     Route: 030

REACTIONS (8)
  - Immunodeficiency [Unknown]
  - Headache [Not Recovered/Not Resolved]
  - Fatigue [Not Recovered/Not Resolved]
  - Cough [Not Recovered/Not Resolved]
  - Brain fog [Not Recovered/Not Resolved]
  - Immune system disorder [Unknown]
  - Hypergammaglobulinaemia [Unknown]
  - Chronic sinusitis [Unknown]

NARRATIVE: CASE EVENT DATE: 20240529
